FAERS Safety Report 4426933-8 (Version None)
Quarter: 2004Q3

REPORT INFORMATION
  Report Type: 
  Country: None (occurrence: None)
  Receive Date: 20040811
  Receipt Date: 20040730
  Transmission Date: 20050211
  Serious: Yes (Hospitalization, Other)
  Sender: FDA-Public Use
  Company Number: HQWYE087424MAY04

PATIENT
  Age: 26 Year
  Sex: Male
  Weight: 85.7 kg

DRUGS (11)
  1. RAPAMUNE [Suspect]
     Indication: PROPHYLAXIS AGAINST TRANSPLANT REJECTION
     Dosage: 8 MG 1X PER 1 DAY
     Dates: start: 20030702
  2. LISINOPRIL [Suspect]
     Indication: HYPERTENSION
     Dates: start: 20040203, end: 20040402
  3. LISINOPRIL [Suspect]
     Indication: HYPERTENSION
     Dates: start: 20040511, end: 20040520
  4. CLONIDINE HCL [Concomitant]
  5. MINOXIDIL [Concomitant]
  6. PENTAMIDINE [Concomitant]
  7. MYCELEX [Concomitant]
  8. METOPROLOL [Concomitant]
  9. LASIX [Concomitant]
  10. NEORAL [Concomitant]
  11. PREDNISONE [Concomitant]

REACTIONS (5)
  - ANGIONEUROTIC OEDEMA [None]
  - DRUG LEVEL DECREASED [None]
  - HAEMATOCRIT DECREASED [None]
  - HAEMOGLOBIN DECREASED [None]
  - RENAL FAILURE ACUTE [None]
